FAERS Safety Report 7824251-9 (Version None)
Quarter: 2011Q4

REPORT INFORMATION
  Report Type: 
  Country: None (occurrence: None)
  Receive Date: 20111019
  Receipt Date: 20111011
  Transmission Date: 20120403
  Serious: Yes (Hospitalization)
  Sender: FDA-Public Use
  Company Number: CA-CELGENEUS-028-C5013-10113078

PATIENT
  Sex: Female

DRUGS (4)
  1. STEROIDS [Concomitant]
     Indication: MULTIPLE MYELOMA
     Route: 065
     Dates: start: 20101101
  2. THALOMID [Suspect]
     Indication: MULTIPLE MYELOMA
     Dosage: 200 MILLIGRAM
     Route: 048
     Dates: start: 20100909, end: 20101013
  3. PREDNISONE [Suspect]
     Indication: MULTIPLE MYELOMA
     Dosage: 40 MILLIGRAM
     Route: 065
     Dates: start: 20100909, end: 20100912
  4. MELPHALAN HYDROCHLORIDE [Suspect]
     Indication: MULTIPLE MYELOMA
     Dosage: 10 MILLIGRAM
     Route: 065
     Dates: start: 20100909, end: 20100912

REACTIONS (1)
  - FATIGUE [None]
